FAERS Safety Report 6760777-7 (Version None)
Quarter: 2010Q2

REPORT INFORMATION
  Report Type: 
  Country: None (occurrence: None)
  Receive Date: 20100607
  Receipt Date: 20100607
  Transmission Date: 20101027
  Serious: Yes (Other)
  Sender: FDA-Public Use
  Company Number: None

PATIENT
  Age: 52 Year
  Sex: Female

DRUGS (2)
  1. FENTANYL [Suspect]
     Indication: PAIN
     Dosage: APPLY 1 PATCH TO SKIN EVERY 3 DAYS
     Route: 062
     Dates: start: 20081201
  2. FENTANYL [Suspect]

REACTIONS (2)
  - DEVICE LEAKAGE [None]
  - THERMAL BURN [None]
